FAERS Safety Report 15030658 (Version 1)
Quarter: 2018Q2

REPORT INFORMATION
  Report Type: Spontaneous
  Country: FR (occurrence: FR)
  Receive Date: 20180619
  Receipt Date: 20180619
  Transmission Date: 20180711
  Serious: Yes (Life-Threatening, Other)
  Sender: FDA-Public Use
  Company Number: FR-PFIZER INC-2018246289

PATIENT
  Age: 59 Year
  Sex: Female
  Weight: 90 kg

DRUGS (6)
  1. PREGABALIN. [Suspect]
     Active Substance: PREGABALIN
     Indication: SUICIDE ATTEMPT
     Dosage: 750 MG, SINGLE
     Route: 048
     Dates: start: 20180506, end: 20180506
  2. TERCIAN /00759301/ [Suspect]
     Active Substance: CYAMEMAZINE
     Indication: SUICIDE ATTEMPT
     Dosage: 1.2 G, SINGLE
     Route: 048
     Dates: start: 20180506, end: 20180506
  3. PRAMIPEXOLE SANDOZ [Suspect]
     Active Substance: PRAMIPEXOLE
     Indication: SUICIDE ATTEMPT
     Dosage: 6.3 MG, SINGLE
     Route: 048
     Dates: start: 20180506, end: 20180506
  4. VOLTARENE (DICLOFENAC SODIUM) [Suspect]
     Active Substance: DICLOFENAC SODIUM
     Indication: SUICIDE ATTEMPT
     Dosage: 450 MG, SINGLE
     Route: 048
     Dates: start: 20180506, end: 20180506
  5. TERCIAN /00759301/ [Suspect]
     Active Substance: CYAMEMAZINE
     Indication: SUICIDE ATTEMPT
     Dosage: 375 MG, SINGLE
     Route: 048
     Dates: start: 20180506, end: 20180506
  6. DOLIPRANE [Suspect]
     Active Substance: ACETAMINOPHEN
     Indication: SUICIDE ATTEMPT
     Dosage: 12000 MG, SINGLE
     Route: 048
     Dates: start: 20180506, end: 20180506

REACTIONS (4)
  - Poisoning deliberate [Recovered/Resolved]
  - Suicide attempt [Unknown]
  - Coma [Recovered/Resolved]
  - Overdose [Unknown]

NARRATIVE: CASE EVENT DATE: 20180506
